FAERS Safety Report 19148251 (Version 2)
Quarter: 2021Q2

REPORT INFORMATION
  Report Type: Report from Study
  Country: US (occurrence: US)
  Receive Date: 20210416
  Receipt Date: 20210527
  Transmission Date: 20210717
  Serious: Yes (Other)
  Sender: FDA-Public Use
  Company Number: US-UCBSA-2021013295

PATIENT
  Age: 85 Year
  Sex: Male
  Weight: 99.79 kg

DRUGS (4)
  1. ROPINIROLE. [Concomitant]
     Active Substance: ROPINIROLE
     Indication: PRODUCT USED FOR UNKNOWN INDICATION
     Dosage: UNK
  2. CARBIDOPA LEVODOPA [Concomitant]
     Active Substance: CARBIDOPA\LEVODOPA
     Indication: PRODUCT USED FOR UNKNOWN INDICATION
     Dosage: UNK
  3. ROTIGOTINE [Suspect]
     Active Substance: ROTIGOTINE
     Indication: PARKINSON^S DISEASE
     Dosage: 4 MILLIGRAM, ONCE DAILY (QD)
     Dates: start: 20201208
  4. ROTIGOTINE [Suspect]
     Active Substance: ROTIGOTINE
     Dosage: 2 MILLIGRAM, ONCE DAILY (QD)
     Dates: end: 20210312

REACTIONS (3)
  - Application site irritation [Recovered/Resolved]
  - Application site rash [Recovered/Resolved]
  - Device adhesion issue [Unknown]

NARRATIVE: CASE EVENT DATE: 202101
